FAERS Safety Report 22653004 (Version 4)
Quarter: 2024Q3

REPORT INFORMATION
  Report Type: Spontaneous
  Country: AU (occurrence: AU)
  Receive Date: 20230629
  Receipt Date: 20240809
  Transmission Date: 20241016
  Serious: Yes (Life-Threatening, Hospitalization, Other)
  Sender: ALKEM
  Company Number: None

PATIENT
  Age: 22 Year
  Sex: Female

DRUGS (16)
  1. MYCOPHENOLATE MOFETIL [Suspect]
     Active Substance: MYCOPHENOLATE MOFETIL
     Indication: Immunosuppressant drug therapy
     Dosage: UNK
     Route: 048
  2. MYCOPHENOLATE MOFETIL [Suspect]
     Active Substance: MYCOPHENOLATE MOFETIL
     Dosage: 1500 MILLIGRAM, BID (EVERY 12 HOUR)
     Route: 042
  3. TACROLIMUS [Suspect]
     Active Substance: TACROLIMUS
     Indication: Immunosuppressant drug therapy
     Dosage: UNK (INFUSION), (TARGET TROUGH LEVELS OF 12-15 NG/ML)
     Route: 065
  4. TACROLIMUS [Suspect]
     Active Substance: TACROLIMUS
     Dosage: UNK (REDUCED DOSE)
     Route: 065
  5. TACROLIMUS [Suspect]
     Active Substance: TACROLIMUS
     Dosage: UNK (RECHALLENGE)
     Route: 065
  6. METHYLPREDNISOLONE [Suspect]
     Active Substance: METHYLPREDNISOLONE
     Indication: Immunosuppressant drug therapy
     Dosage: UNK (UPTITRATE DOSE)
     Route: 042
  7. AMPHOTERICIN B [Concomitant]
     Active Substance: AMPHOTERICIN B
     Indication: Antifungal prophylaxis
     Dosage: UNK (NEBULISED)
     Route: 065
  8. AMPHOTERICIN B [Concomitant]
     Active Substance: AMPHOTERICIN B
     Indication: Anastomotic infection
  9. AZITHROMYCIN [Concomitant]
     Active Substance: AZITHROMYCIN
     Indication: Bronchiolitis obliterans syndrome
     Dosage: 250 MILLIGRAM, TID (THREE TIME WEEKLY) (750 MG EVERY 1 WEEK)
     Route: 048
  10. BACTRIM [Concomitant]
     Active Substance: SULFAMETHOXAZOLE\TRIMETHOPRIM
     Indication: Antifungal prophylaxis
     Dosage: UNK, QD (EVERY 1 DAY)
     Route: 048
  11. PIPERACILLIN SODIUM\TAZOBACTAM SODIUM [Concomitant]
     Active Substance: PIPERACILLIN SODIUM\TAZOBACTAM SODIUM
     Indication: Evidence based treatment
     Dosage: 4.5 GRAM, TID (EVERY 8 HOUR)
     Route: 042
  12. PIPERACILLIN SODIUM\TAZOBACTAM SODIUM [Concomitant]
     Active Substance: PIPERACILLIN SODIUM\TAZOBACTAM SODIUM
     Indication: Antibiotic therapy
  13. VANCOMYCIN [Concomitant]
     Active Substance: VANCOMYCIN
     Indication: Evidence based treatment
     Dosage: UNK
     Route: 042
  14. VANCOMYCIN [Concomitant]
     Active Substance: VANCOMYCIN
     Indication: Antibiotic therapy
  15. VORICONAZOLE [Concomitant]
     Active Substance: VORICONAZOLE
     Indication: Antibiotic therapy
     Dosage: 200 MILLIGRAM, BID (EVERY 12 HOUR)
     Route: 042
  16. VORICONAZOLE [Concomitant]
     Active Substance: VORICONAZOLE
     Indication: Evidence based treatment

REACTIONS (13)
  - Bronchial anastomosis complication [Recovered/Resolved]
  - Immunosuppressant drug level increased [Unknown]
  - Dehiscence [Recovered/Resolved]
  - Ischaemia [Recovered/Resolved]
  - Hypoperfusion [Recovered/Resolved]
  - Haemothorax [Recovered/Resolved]
  - Pneumomediastinum [Recovered/Resolved]
  - Traumatic haemothorax [Recovered/Resolved]
  - Upper airway necrosis [Recovered/Resolved]
  - Supraventricular tachycardia [Recovered/Resolved]
  - Hypotension [Recovered/Resolved]
  - Pseudomonas infection [Recovered/Resolved]
  - Transplant rejection [Unknown]

NARRATIVE: CASE EVENT DATE: 20160101
